FAERS Safety Report 5402802-1 (Version None)
Quarter: 2007Q3

REPORT INFORMATION
  Report Type: 
  Country: None (occurrence: None)
  Receive Date: 20070801
  Receipt Date: 20070719
  Transmission Date: 20080115
  Serious: Yes (Hospitalization)
  Sender: FDA-Public Use
  Company Number: IT-MERCK-0707ITA00046

PATIENT
  Age: 36 Year
  Sex: Male

DRUGS (3)
  1. CRIXIVAN [Suspect]
     Indication: HIV INFECTION
     Route: 048
  2. ZALCITABINE [Concomitant]
     Indication: HIV INFECTION
     Route: 048
  3. ZIDOVUDINE [Concomitant]
     Indication: HIV INFECTION
     Route: 065

REACTIONS (1)
  - CUTANEOUS LARVA MIGRANS [None]
